FAERS Safety Report 5134015-5 (Version None)
Quarter: 2006Q4

REPORT INFORMATION
  Report Type: 
  Country: None (occurrence: None)
  Receive Date: 20061023
  Receipt Date: 20061023
  Transmission Date: 20070319
  Serious: Yes (Death, Hospitalization, Other)
  Sender: FDA-Public Use
  Company Number: None

PATIENT
  Age: 55 Year
  Sex: Male
  Weight: 71.6683 kg

DRUGS (2)
  1. MORPHINE [Suspect]
     Indication: BACK PAIN
     Dosage: IV DRIP
     Route: 041
     Dates: start: 20061004, end: 20061008
  2. DILAUDID [Suspect]
     Indication: BACK PAIN
     Dosage: IV
     Route: 041
     Dates: start: 20061008, end: 20061011

REACTIONS (17)
  - APHASIA [None]
  - CONVULSION [None]
  - DELIRIUM [None]
  - DEPRESSED LEVEL OF CONSCIOUSNESS [None]
  - DRUG INTERACTION [None]
  - DYSKINESIA [None]
  - FALL [None]
  - HAEMORRHAGE INTRACRANIAL [None]
  - HALLUCINATION [None]
  - HEAD INJURY [None]
  - INAPPROPRIATE SCHEDULE OF DRUG ADMINISTRATION [None]
  - LOSS OF CONSCIOUSNESS [None]
  - MUSCLE TWITCHING [None]
  - NEUROPATHY [None]
  - STAPHYLOCOCCAL INFECTION [None]
  - SUBDURAL HAEMATOMA [None]
  - TREMOR [None]
